FAERS Safety Report 9928355 (Version 1)
Quarter: 2014Q1

REPORT INFORMATION
  Report Type: Spontaneous
  Country: DE (occurrence: DE)
  Receive Date: 20140227
  Receipt Date: 20140227
  Transmission Date: 20141002
  Serious: Yes (Other)
  Sender: FDA-Public Use
  Company Number: DE-SHIRE-DE201400020

PATIENT
  Sex: 0

DRUGS (2)
  1. EQUASYM RETARD [Suspect]
     Indication: PRODUCT USED FOR UNKNOWN INDICATION
     Dosage: 30 MG, UNKNOWN
     Route: 048
  2. EQUASYM RETARD [Suspect]
     Dosage: 20 MG, UNKNOWN
     Route: 048
     Dates: start: 201211

REACTIONS (1)
  - Platelet disorder [Not Recovered/Not Resolved]
